FAERS Safety Report 5310190-4 (Version None)
Quarter: 2007Q2

REPORT INFORMATION
  Report Type: 
  Country: None (occurrence: None)
  Receive Date: 20070423
  Receipt Date: 20070411
  Transmission Date: 20071010
  Serious: Yes (Hospitalization)
  Sender: FDA-Public Use
  Company Number: GXKR2007DEC03338

PATIENT
  Age: 46 Year
  Sex: Female

DRUGS (1)
  1. CO-TRIMOXAZOLE (NGX) (SULFAMETHOXAZOLE, TRIMETHOPRIM) UNKNOWN, 160/800 [Suspect]
     Indication: CYSTITIS
     Dosage: 160/800 MG, BID, ORAL
     Route: 048

REACTIONS (9)
  - ABNORMAL BEHAVIOUR [None]
  - ACUTE PSYCHOSIS [None]
  - AFFECT LABILITY [None]
  - AGITATION [None]
  - DELUSION [None]
  - DISTURBANCE IN ATTENTION [None]
  - HALLUCINATIONS, MIXED [None]
  - INCOHERENT [None]
  - THINKING ABNORMAL [None]
